FAERS Safety Report 4662630-1 (Version None)
Quarter: 2005Q2

REPORT INFORMATION
  Report Type: 
  Country: None (occurrence: None)
  Receive Date: 20050513
  Receipt Date: 20050513
  Transmission Date: 20051028
  Serious: No
  Sender: FDA-Public Use
  Company Number: None

PATIENT
  Age: 47 Year
  Sex: Male
  Weight: 53.3 kg

DRUGS (1)
  1. PROTONIX [Suspect]
     Indication: GASTROINTESTINAL HAEMORRHAGE
     Dosage: 80 MG  BID  INTRAVENOU
     Route: 042
     Dates: start: 20040824, end: 20040826

REACTIONS (1)
  - PLATELET COUNT DECREASED [None]
